FAERS Safety Report 6435421-9 (Version None)
Quarter: 2009Q4

REPORT INFORMATION
  Report Type: 
  Country: None (occurrence: None)
  Receive Date: 20091106
  Receipt Date: 20091027
  Transmission Date: 20100525
  Serious: Yes (Hospitalization)
  Sender: FDA-Public Use
  Company Number: 232402J09USA

PATIENT
  Age: 28 Year
  Sex: Female
  Weight: 37 kg

DRUGS (9)
  1. REBIF [Suspect]
     Indication: MULTIPLE SCLEROSIS
     Dosage: 44 MCG, 3 IN 1 WEEKS, SUBCUTANEOUS
     Route: 058
     Dates: start: 20070419
  2. DDAVP [Suspect]
     Indication: POLLAKIURIA
     Dates: start: 20091014, end: 20091001
  3. SYNTHROID [Concomitant]
  4. TRIIODOTHYRONINE (LIOTHYRONINE SODIUM) [Concomitant]
  5. UNSPECIFIED BIRTH CONTROL MEDICATION (ALL OTHER THERAPEUTIC PRODUCTS) [Concomitant]
  6. ENABLEX (DARIFENACIN) [Concomitant]
  7. FLAGYL [Concomitant]
  8. AUGMENTIN '125' [Concomitant]
  9. MULTIVITAMIN (MULTIVITAMIN) [Concomitant]

REACTIONS (6)
  - BLOOD MAGNESIUM DECREASED [None]
  - DIARRHOEA [None]
  - HEADACHE [None]
  - NAUSEA [None]
  - THYROXINE DECREASED [None]
  - VOMITING [None]
